FAERS Safety Report 12581881 (Version 3)
Quarter: 2016Q3

REPORT INFORMATION
  Report Type: Report from Study
  Country: CA (occurrence: CA)
  Receive Date: 20160722
  Receipt Date: 20160906
  Transmission Date: 20161109
  Serious: Yes (Disabling)
  Sender: FDA-Public Use
  Company Number: CA-AMGEN-CANSL2016092109

PATIENT
  Age: 81 Year
  Sex: Male
  Weight: 104.31 kg

DRUGS (3)
  1. ARANESP [Suspect]
     Active Substance: DARBEPOETIN ALFA
     Indication: NEPHROGENIC ANAEMIA
     Dosage: 60 MUG, QWK
     Route: 058
     Dates: start: 20160622, end: 20160713
  2. ASPIRIN. [Concomitant]
     Active Substance: ASPIRIN
     Dosage: UNK UNK, AS NECESSARY
  3. INSULIN [Concomitant]
     Active Substance: INSULIN NOS

REACTIONS (14)
  - Pain in extremity [Unknown]
  - Arthralgia [Unknown]
  - Blood potassium increased [Unknown]
  - Myalgia [Unknown]
  - Headache [Unknown]
  - Renal disorder [Unknown]
  - Balance disorder [Unknown]
  - Fatigue [Not Recovered/Not Resolved]
  - Feeling abnormal [Not Recovered/Not Resolved]
  - Muscular weakness [Not Recovered/Not Resolved]
  - Drug ineffective [Unknown]
  - Haemoglobin decreased [Unknown]
  - Red blood cell count decreased [Unknown]
  - Mobility decreased [Unknown]

NARRATIVE: CASE EVENT DATE: 20160710
